FAERS Safety Report 9152771 (Version 3)
Quarter: 2013Q2

REPORT INFORMATION
  Report Type: Spontaneous
  Country: JP (occurrence: JP)
  Receive Date: 20130308
  Receipt Date: 20130410
  Transmission Date: 20140414
  Serious: Yes (Hospitalization, Other)
  Sender: FDA-Public Use
  Company Number: JP-UCBSA-080051

PATIENT
  Age: 44 Year
  Sex: Male
  Weight: 64 kg

DRUGS (8)
  1. XYZAL [Suspect]
     Indication: SEASONAL ALLERGY
     Route: 048
     Dates: start: 20130201, end: 20130214
  2. GASTER D [Suspect]
     Indication: ABDOMINAL DISCOMFORT
     Route: 048
     Dates: start: 20130215, end: 20130218
  3. MUCOSTA [Concomitant]
     Indication: ABDOMINAL DISCOMFORT
     Route: 048
     Dates: start: 20130215, end: 20130218
  4. TALION [Concomitant]
     Indication: DERMATITIS
     Route: 048
     Dates: end: 20130218
  5. MOHRUS TAPE [Concomitant]
     Dosage: PADS
     Route: 061
  6. PATANOL [Concomitant]
     Dosage: FORM:DRPP
     Route: 031
  7. NASONEX [Concomitant]
     Dosage: FORM:NSPY
     Route: 045
  8. ADOAIR [Concomitant]
     Indication: ASTHMA
     Route: 055

REACTIONS (5)
  - Liver disorder [Recovering/Resolving]
  - Periportal sinus dilatation [Unknown]
  - Biliary tract disorder [Unknown]
  - Jaundice [Unknown]
  - Malaise [Unknown]
